FAERS Safety Report 9001565 (Version 1)
Quarter: 2013Q1

REPORT INFORMATION
  Report Type: Spontaneous
  Country: US (occurrence: US)
  Receive Date: 20130107
  Receipt Date: 20130107
  Transmission Date: 20140127
  Serious: No
  Sender: FDA-Public Use
  Company Number: US-PFIZER INC-2013002414

PATIENT
  Age: 41 Year
  Sex: Female
  Weight: 66 kg

DRUGS (1)
  1. LEVOXYL [Suspect]
     Dosage: UNK

REACTIONS (5)
  - Feeling abnormal [Unknown]
  - Eye disorder [Unknown]
  - Weight decreased [Unknown]
  - Alopecia [Unknown]
  - Muscle spasms [Unknown]
